FAERS Safety Report 8816534 (Version 1)
Quarter: 2012Q4

REPORT INFORMATION
  Report Type: Spontaneous
  Country: US (occurrence: None)
  Receive Date: 20120927
  Receipt Date: 20120927
  Transmission Date: 20130627
  Serious: Yes (Hospitalization)
  Sender: FDA-Public Use
  Company Number: SULF20120008

PATIENT
  Age: 59 Year
  Sex: Male

DRUGS (1)
  1. SULFASALAZINE [Suspect]
     Indication: CROHN^S DISEASE

REACTIONS (7)
  - Cardiac murmur [None]
  - Sinus tachycardia [None]
  - Electrocardiogram ST-T change [None]
  - Pleural effusion [None]
  - Pericardial effusion [None]
  - C-reactive protein increased [None]
  - Antinuclear antibody positive [None]
